FAERS Safety Report 13693273 (Version 1)
Quarter: 2017Q2

REPORT INFORMATION
  Report Type: Spontaneous
  Country: US (occurrence: US)
  Receive Date: 20170627
  Receipt Date: 20170627
  Transmission Date: 20170830
  Serious: No
  Sender: FDA-Public Use
  Company Number: US-BAYER-2017-120479

PATIENT
  Age: 66 Year
  Sex: Male

DRUGS (1)
  1. STIVARGA [Suspect]
     Active Substance: REGORAFENIB
     Indication: BONE NEOPLASM
     Dosage: 160 MG, DAILY
     Route: 048
     Dates: start: 20170531, end: 20170614

REACTIONS (4)
  - Palmar-plantar erythrodysaesthesia syndrome [Unknown]
  - Off label use [None]
  - Product use in unapproved indication [None]
  - Rash [Unknown]

NARRATIVE: CASE EVENT DATE: 20170611
